FAERS Safety Report 10174842 (Version 2)
Quarter: 2014Q2

REPORT INFORMATION
  Report Type: Spontaneous
  Country: US (occurrence: US)
  Receive Date: 20140515
  Receipt Date: 20140527
  Transmission Date: 20141212
  Serious: Yes (Death)
  Sender: FDA-Public Use
  Company Number: US-PFIZER INC-2014130799

PATIENT
  Age: 76 Year
  Sex: Female

DRUGS (7)
  1. BOSULIF [Suspect]
     Indication: CHRONIC MYELOID LEUKAEMIA
     Dosage: 500 MG, CYCLIC (DAILY (ON DAYS 1-28))
     Route: 048
     Dates: start: 20130326
  2. CALCIUM + VIT D [Concomitant]
     Dosage: UNK
  3. FERROUS SULFATE [Concomitant]
     Dosage: UNK
  4. NOVOLOG [Concomitant]
     Dosage: UNK
  5. THYROID [Concomitant]
     Dosage: UNK
  6. VITAMIN B12 [Concomitant]
     Dosage: UNK
  7. VITAMIN D [Concomitant]
     Dosage: UNK

REACTIONS (2)
  - Disease progression [Fatal]
  - Chronic myeloid leukaemia [Fatal]
